FAERS Safety Report 4742527-9 (Version None)
Quarter: 2005Q3

REPORT INFORMATION
  Report Type: 
  Country: None (occurrence: None)
  Receive Date: 20050808
  Receipt Date: 20050725
  Transmission Date: 20060218
  Serious: Yes (Disabling)
  Sender: FDA-Public Use
  Company Number: ALMO2005041

PATIENT
  Sex: Female

DRUGS (1)
  1. AXERT [Suspect]
     Indication: MIGRAINE
     Dosage: 12.5 MG DAILY
     Dates: start: 20050724, end: 20050725

REACTIONS (2)
  - BLINDNESS [None]
  - CEREBROVASCULAR SPASM [None]
